FAERS Safety Report 17458266 (Version 1)
Quarter: 2020Q1

REPORT INFORMATION
  Report Type: Spontaneous
  Country: US (occurrence: US)
  Receive Date: 20200225
  Receipt Date: 20200225
  Transmission Date: 20200409
  Serious: Yes (Death, Other)
  Sender: FDA-Public Use
  Company Number: US-SHIRE-US202007027

PATIENT
  Age: 52 Year
  Sex: Female

DRUGS (1)
  1. GATTEX [Suspect]
     Active Substance: TEDUGLUTIDE\WATER
     Indication: PRODUCT USED FOR UNKNOWN INDICATION
     Dosage: 3 UNK, 1X/DAY:QD
     Route: 065
     Dates: start: 20160315

REACTIONS (1)
  - Death [Fatal]

NARRATIVE: CASE EVENT DATE: 20200208
